FAERS Safety Report 6750138-9 (Version None)
Quarter: 2010Q2

REPORT INFORMATION
  Report Type: 
  Country: None (occurrence: None)
  Receive Date: 20100601
  Receipt Date: 20100521
  Transmission Date: 20101027
  Serious: Yes (Hospitalization)
  Sender: FDA-Public Use
  Company Number: DE-ELI_LILLY_AND_COMPANY-DE201005006320

PATIENT
  Sex: Male
  Weight: 92 kg

DRUGS (5)
  1. BYETTA [Suspect]
     Indication: DIABETES MELLITUS
     Dosage: 5 D/F, DAILY (1/D)
     Route: 058
     Dates: start: 20090512, end: 20090608
  2. BYETTA [Suspect]
     Dosage: 10 UG, DAILY (1/D)
     Route: 058
     Dates: start: 20090609, end: 20100510
  3. METFORMIN HCL [Concomitant]
     Indication: DIABETES MELLITUS
     Dosage: 1000 D/F, UNK
     Route: 048
  4. GLIMEPIRIDE [Concomitant]
     Indication: DIABETES MELLITUS
     Dosage: 4 D/F, UNK
     Route: 048
  5. AVANDIA [Concomitant]
     Indication: DIABETES MELLITUS
     Dosage: 4 D/F, UNK
     Route: 048

REACTIONS (1)
  - PANCREATITIS [None]
